FAERS Safety Report 7358559-0 (Version None)
Quarter: 2011Q1

REPORT INFORMATION
  Report Type: 
  Country: None (occurrence: None)
  Receive Date: 20110317
  Receipt Date: 20110307
  Transmission Date: 20110831
  Serious: Yes (Other)
  Sender: FDA-Public Use
  Company Number: CA-JNJFOC-20110303767

PATIENT
  Sex: Female
  Weight: 57 kg

DRUGS (2)
  1. CIPRALEX [Suspect]
     Indication: DEPRESSION
     Route: 065
  2. REMICADE [Suspect]
     Indication: CROHN'S DISEASE
     Route: 042

REACTIONS (2)
  - MOOD SWINGS [None]
  - DEPRESSION [None]
